FAERS Safety Report 5387872-1 (Version None)
Quarter: 2007Q3

REPORT INFORMATION
  Report Type: 
  Country: None (occurrence: None)
  Receive Date: 20070716
  Receipt Date: 20060808
  Transmission Date: 20080115
  Serious: No
  Sender: FDA-Public Use
  Company Number: A0615532A

PATIENT
  Age: 24 Year
  Sex: Male

DRUGS (1)
  1. NICORETTE (MINT) [Suspect]
     Dates: start: 20060724, end: 20060804

REACTIONS (2)
  - DYSPEPSIA [None]
  - HICCUPS [None]
